FAERS Safety Report 5149503-5 (Version None)
Quarter: 2006Q4

REPORT INFORMATION
  Report Type: 
  Country: None (occurrence: None)
  Receive Date: 20061113
  Receipt Date: 20060221
  Transmission Date: 20070319
  Serious: No
  Sender: FDA-Public Use
  Company Number: US-GLAXOSMITHKLINE-A0594649A

PATIENT
  Age: 67 Year
  Sex: Male

DRUGS (13)
  1. COREG [Suspect]
     Dosage: 50MG TWICE PER DAY
     Route: 048
     Dates: start: 20041021
  2. DYRENIUM [Concomitant]
  3. ALLOPURINOL [Concomitant]
  4. UNKNOWN MEDICATION [Concomitant]
  5. DIGITEK [Concomitant]
  6. BUMETANIDE [Concomitant]
  7. COZAAR [Concomitant]
  8. PROTONIX [Concomitant]
  9. PERCOCET [Concomitant]
  10. MOBIC [Concomitant]
  11. METOLAZONE [Concomitant]
  12. ZETIA [Concomitant]
  13. NIACIN [Concomitant]

REACTIONS (3)
  - ABDOMINAL PAIN UPPER [None]
  - BURNING SENSATION [None]
  - STOMACH SCAN ABNORMAL [None]
